FAERS Safety Report 24349976 (Version 1)
Quarter: 2024Q3

REPORT INFORMATION
  Report Type: Report from Study
  Country: US (occurrence: US)
  Receive Date: 20240923
  Receipt Date: 20240923
  Transmission Date: 20241016
  Serious: No
  Sender: ROCHE
  Company Number: US-ROCHE-3498122

PATIENT
  Age: 68 Year
  Sex: Male

DRUGS (4)
  1. HERCEPTIN [Suspect]
     Active Substance: TRASTUZUMAB
     Indication: Cholangiocarcinoma
     Route: 041
     Dates: start: 202312
  2. PERJETA [Suspect]
     Active Substance: PERTUZUMAB
     Indication: Cholangiocarcinoma
     Route: 042
     Dates: start: 202312
  3. COPAXONE [Concomitant]
     Active Substance: GLATIRAMER ACETATE
  4. XARELTO [Concomitant]
     Active Substance: RIVAROXABAN

REACTIONS (2)
  - Off label use [Unknown]
  - Diarrhoea [Recovered/Resolved]

NARRATIVE: CASE EVENT DATE: 20231201
